FAERS Safety Report 8931319 (Version 2)
Quarter: 2012Q4

REPORT INFORMATION
  Report Type: 
  Country: US (occurrence: US)
  Receive Date: 20121128
  Receipt Date: 20121130
  Transmission Date: 20130627
  Serious: Yes (Other)
  Sender: FDA-Public Use
  Company Number: US-PFIZER INC-2012294972

PATIENT
  Age: 14 Year
  Sex: Female

DRUGS (2)
  1. TYGACIL [Suspect]
     Indication: WHITE BLOOD CELL INCREASED
     Dosage: UNK
     Dates: start: 201211, end: 201211
  2. IMIPENEM [Suspect]
     Dosage: UNK
     Dates: start: 201211

REACTIONS (2)
  - Pancreatitis acute [Not Recovered/Not Resolved]
  - Back pain [Unknown]
